FAERS Safety Report 4907214-2 (Version None)
Quarter: 2006Q1

REPORT INFORMATION
  Report Type: 
  Country: None (occurrence: None)
  Receive Date: 20060207
  Receipt Date: 20060118
  Transmission Date: 20060701
  Serious: Yes (Death, Hospitalization, Other)
  Sender: FDA-Public Use
  Company Number: US200601003198

PATIENT
  Age: 84 Year
  Sex: Male

DRUGS (3)
  1. FORTEO [Suspect]
     Indication: FRACTURE
     Dates: start: 20040201
  2. FORTEO PEN (FORTEO PEN) PEN, DISPOSABLE [Concomitant]
  3. PEN, DISPOSABLE [Concomitant]

REACTIONS (6)
  - CEREBRAL HAEMATOMA [None]
  - CONDITION AGGRAVATED [None]
  - CONVULSION [None]
  - FALL [None]
  - PNEUMONIA [None]
  - WRIST FRACTURE [None]
